FAERS Safety Report 5238881-4 (Version None)
Quarter: 2007Q1

REPORT INFORMATION
  Report Type: 
  Country: None (occurrence: None)
  Receive Date: 20070215
  Receipt Date: 20070205
  Transmission Date: 20070707
  Serious: Yes (Hospitalization, Other)
  Sender: FDA-Public Use
  Company Number: JP-PFIZER INC-2007010033

PATIENT
  Sex: Male

DRUGS (4)
  1. LIPITOR [Suspect]
     Indication: HYPERLIPIDAEMIA
     Dosage: DAILY DOSE:5MG
     Route: 048
     Dates: start: 20031115, end: 20061215
  2. VALSARTAN [Suspect]
     Dosage: DAILY DOSE:80MG
     Route: 048
  3. AMLODIPINE BESYLATE [Suspect]
     Indication: HYPERTENSION
     Dosage: DAILY DOSE:5MG
     Route: 048
  4. METHAPHYLLIN [Suspect]
     Indication: GASTRITIS
     Route: 048
     Dates: start: 19980207, end: 20061215

REACTIONS (18)
  - DEPRESSED LEVEL OF CONSCIOUSNESS [None]
  - DERMATITIS CONTACT [None]
  - DIABETES MELLITUS NON-INSULIN-DEPENDENT [None]
  - DIABETIC HYPEROSMOLAR COMA [None]
  - DIABETIC NEPHROPATHY [None]
  - GAIT DISTURBANCE [None]
  - GAMMA-GLUTAMYLTRANSFERASE ABNORMAL [None]
  - HAEMODIALYSIS [None]
  - HEART RATE DECREASED [None]
  - HYPOGLYCAEMIA [None]
  - METABOLIC ACIDOSIS [None]
  - NEPHROPATHY [None]
  - NEUROGENIC BLADDER [None]
  - NEUROSIS [None]
  - PENILE ULCERATION [None]
  - RENAL FAILURE ACUTE [None]
  - RHABDOMYOLYSIS [None]
  - SCROTAL ULCER [None]
